FAERS Safety Report 18258168 (Version 1)
Quarter: 2020Q3

REPORT INFORMATION
  Report Type: Spontaneous
  Country: NL (occurrence: NL)
  Receive Date: 20200911
  Receipt Date: 20200911
  Transmission Date: 20201103
  Serious: Yes (Other)
  Sender: FDA-Public Use
  Company Number: NL-MYLANLABS-2020M1077832

PATIENT
  Age: 72 Year
  Sex: Female
  Weight: 57 kg

DRUGS (7)
  1. DURATEARS                          /00635701/ [Concomitant]
     Dosage: 1 DOSAGE FORM(ZO NODIG)
     Route: 047
  2. TRETINOINE TOCOFERIL [Concomitant]
     Dosage: 1 DOSAGE FORM, QD(^S AVONDS AANBRENGEN)
  3. ACETYLSALICYLZUUR [Concomitant]
     Active Substance: ASPIRIN
     Dosage: 80 MILLIGRAM, QD
     Route: 048
  4. COZAAR [Concomitant]
     Active Substance: LOSARTAN POTASSIUM
     Dosage: 50 MILLIGRAM, QD
     Route: 048
  5. METOPROLOL. [Concomitant]
     Active Substance: METOPROLOL
     Dosage: 100 MILLIGRAM, QD
     Route: 048
  6. ATENOLOL/CHLORTALIDONE [Suspect]
     Active Substance: ATENOLOL\CHLORTHALIDONE
     Indication: PRODUCT USED FOR UNKNOWN INDICATION
     Dosage: 1 DOSAGE FORM, QD
     Route: 048
     Dates: start: 20031209
  7. SIMVASTATINE [Concomitant]
     Active Substance: SIMVASTATIN
     Dosage: 10 MILLIGRAM, QD
     Route: 048

REACTIONS (2)
  - Peripheral ischaemia [Recovered/Resolved]
  - Skin necrosis [Recovered/Resolved]

NARRATIVE: CASE EVENT DATE: 20031225
